FAERS Safety Report 7654831-5 (Version None)
Quarter: 2011Q3

REPORT INFORMATION
  Report Type: 
  Country: None (occurrence: None)
  Receive Date: 20110803
  Receipt Date: 20110803
  Transmission Date: 20111222
  Serious: No
  Sender: FDA-Public Use
  Company Number: None

PATIENT
  Sex: Male

DRUGS (1)
  1. ZYTIGA [Suspect]
     Indication: PROSTATE CANCER
     Dosage: 1000MG DAILY PO
     Route: 048
     Dates: start: 20110502, end: 20110801

REACTIONS (2)
  - DIZZINESS [None]
  - OEDEMA PERIPHERAL [None]
